FAERS Safety Report 23221636 (Version 2)
Quarter: 2024Q1

REPORT INFORMATION
  Report Type: Spontaneous
  Country: US (occurrence: US)
  Receive Date: 20231123
  Receipt Date: 20240221
  Transmission Date: 20240410
  Serious: Yes (Other)
  Sender: FDA-Public Use
  Company Number: US-002147023-NVSC2023US248538

PATIENT
  Age: 72 Year
  Sex: Female
  Weight: 83 kg

DRUGS (27)
  1. KYMRIAH [Suspect]
     Active Substance: TISAGENLECLEUCEL
     Indication: Follicular lymphoma
     Dosage: 43 ML, ONCE/SINGLE (3.1 X10E8 CAR- POSITIVE VIABLE T CELLS)
     Route: 042
     Dates: start: 20231120, end: 20231120
  2. LEVAQUIN [Concomitant]
     Active Substance: LEVOFLOXACIN
     Indication: Antibiotic therapy
     Dosage: 250 MG, QD
     Route: 048
     Dates: start: 20231121, end: 20231130
  3. MEROPENEM [Concomitant]
     Active Substance: MEROPENEM
     Indication: Antibiotic therapy
     Dosage: 1 G, Q12H
     Route: 042
     Dates: start: 20231122, end: 20231127
  4. URSODIOL [Concomitant]
     Active Substance: URSODIOL
     Indication: Tumour lysis syndrome
     Dosage: 300 MG, QD
     Route: 048
     Dates: start: 20231120, end: 20231130
  5. PANTOPRAZOLE [Concomitant]
     Active Substance: PANTOPRAZOLE
     Indication: Reflux gastritis
     Dosage: 40 MG, QD
     Route: 048
     Dates: start: 20231120, end: 20231130
  6. MAGNESIUM [Concomitant]
     Active Substance: MAGNESIUM
     Indication: Fluid replacement
     Dosage: 2 G (X 1)
     Route: 042
     Dates: start: 20231120, end: 20231120
  7. POTASSIUM [Concomitant]
     Active Substance: POTASSIUM
     Indication: Fluid replacement
     Dosage: 20 MEQ
     Route: 042
     Dates: start: 20231127, end: 20231127
  8. ZOLPIDEM [Concomitant]
     Active Substance: ZOLPIDEM TARTRATE
     Indication: Insomnia
     Dosage: 5 MG
     Route: 048
     Dates: start: 20231120, end: 20231130
  9. CHOLECALCIFEROL [Concomitant]
     Active Substance: CHOLECALCIFEROL
     Indication: Vitamin supplementation
     Dosage: (1000 U), QD
     Route: 048
     Dates: start: 20231120, end: 20231130
  10. VITAMINS [Concomitant]
     Active Substance: VITAMINS
     Indication: Vitamin supplementation
     Dosage: 1 DOSAGE FORM, QD
     Route: 048
     Dates: start: 20231120, end: 20231130
  11. METOPROLOL SUCCINATE [Concomitant]
     Active Substance: METOPROLOL SUCCINATE
     Indication: Hypertension
     Dosage: 25 MG, BID
     Route: 048
     Dates: start: 20231120, end: 20231130
  12. LORAZEPAM [Concomitant]
     Active Substance: LORAZEPAM
     Indication: Anxiety
     Dosage: 0.5 MG (X 1)
     Route: 048
     Dates: start: 20231124, end: 20231124
  13. LISINOPRIL [Concomitant]
     Active Substance: LISINOPRIL
     Indication: Hypertension
     Dosage: 20 MG, QD
     Route: 048
     Dates: start: 20231120, end: 20231130
  14. GLIPIZIDE XL [Concomitant]
     Active Substance: GLIPIZIDE
     Indication: Hyperglycaemia
     Dosage: 5 MG, QD
     Route: 048
     Dates: start: 20231120, end: 20231130
  15. CYCLOBENZAPRINE [Concomitant]
     Active Substance: CYCLOBENZAPRINE
     Indication: Muscle relaxant therapy
     Dosage: 5 MG, QD
     Route: 048
     Dates: start: 20231120, end: 20231130
  16. BUSPIRONE [Concomitant]
     Active Substance: BUSPIRONE HYDROCHLORIDE
     Indication: Anxiety
     Dosage: 5 MG, BID
     Route: 048
     Dates: start: 20231120, end: 20231130
  17. LIPITOR [Concomitant]
     Active Substance: ATORVASTATIN CALCIUM
     Indication: Hypercholesterolaemia
     Dosage: 20 MG (NIGHTLY)
     Route: 048
     Dates: start: 20231120, end: 20231130
  18. AMLODIPINE [Concomitant]
     Active Substance: AMLODIPINE BESYLATE
     Indication: Hypertension
     Dosage: 5 MG, QD
     Route: 048
     Dates: start: 20231120, end: 20231130
  19. ACYCLOVIR [Concomitant]
     Active Substance: ACYCLOVIR
     Indication: Antiviral prophylaxis
     Dosage: 400 MG, BID
     Route: 048
     Dates: start: 20231120, end: 20231130
  20. DIPHENHYDRAMINE [Concomitant]
     Active Substance: DIPHENHYDRAMINE
     Indication: Premedication
     Dosage: 25 MG (X 2)
     Route: 042
     Dates: start: 20231120, end: 20231120
  21. CLOTRIMAZOLE [Concomitant]
     Active Substance: CLOTRIMAZOLE
     Indication: Antifungal prophylaxis
     Dosage: 10 MG (3 X DAILY), QD
     Route: 048
     Dates: start: 20231120, end: 20231123
  22. ONDANSETRON [Concomitant]
     Active Substance: ONDANSETRON
     Indication: Nausea
     Dosage: 4 MG (X 1)
     Route: 042
     Dates: start: 20231121, end: 20231121
  23. FAMOTIDINE [Concomitant]
     Active Substance: FAMOTIDINE
     Indication: Infusion related reaction
     Dosage: 20 MG (1 DF)
     Route: 042
     Dates: start: 20231120, end: 20231120
  24. FAMOTIDINE [Concomitant]
     Active Substance: FAMOTIDINE
     Dosage: 20 MG (1 DF)
     Route: 042
     Dates: start: 20231121, end: 20231121
  25. LEVETIRACETAM [Concomitant]
     Active Substance: LEVETIRACETAM
     Indication: Seizure prophylaxis
     Dosage: 250 MG, Q12H
     Route: 048
     Dates: start: 20231124, end: 20231130
  26. FLUCONAZOLE [Concomitant]
     Active Substance: FLUCONAZOLE
     Indication: Antifungal prophylaxis
     Dosage: 200 MG, QD
     Route: 048
     Dates: start: 20231124, end: 20231128
  27. GUAIFENESIN [Concomitant]
     Active Substance: GUAIFENESIN
     Indication: Cough
     Dosage: 200 MG (Q 4 PRN)
     Route: 048
     Dates: start: 20231125, end: 20231126

REACTIONS (4)
  - Cytokine release syndrome [Unknown]
  - Pyrexia [Unknown]
  - Headache [Unknown]
  - Chills [Recovered/Resolved]

NARRATIVE: CASE EVENT DATE: 20231120
